FAERS Safety Report 14891911 (Version 1)
Quarter: 2018Q2

REPORT INFORMATION
  Report Type: Spontaneous
  Country: BR (occurrence: BR)
  Receive Date: 20180514
  Receipt Date: 20180514
  Transmission Date: 20180711
  Serious: Yes (Other)
  Sender: FDA-Public Use
  Company Number: BR-PFIZER INC-2018193810

PATIENT
  Sex: Female

DRUGS (6)
  1. XALATAN [Suspect]
     Active Substance: LATANOPROST
     Dosage: UNK UNK, 1X/DAY (AT NIGHT)
  2. AZORGA [Concomitant]
     Active Substance: BRINZOLAMIDE\TIMOLOL MALEATE
     Indication: GLAUCOMA
     Dosage: UNK, 2X/DAY
  3. OLMETEC [Concomitant]
     Active Substance: OLMESARTAN MEDOXOMIL
     Indication: BLOOD PRESSURE ABNORMAL
     Dosage: 20 MG, UNK
  4. LIPITOR [Concomitant]
     Active Substance: ATORVASTATIN CALCIUM
     Indication: ANGIOPATHY
     Dosage: UNK
  5. XALATAN [Suspect]
     Active Substance: LATANOPROST
     Indication: GLAUCOMA
     Dosage: UNK, 1X/DAY (AT NIGHT)
  6. NORVASC [Concomitant]
     Active Substance: AMLODIPINE BESYLATE
     Indication: BLOOD PRESSURE ABNORMAL
     Dosage: UNK

REACTIONS (5)
  - Glaucoma [Not Recovered/Not Resolved]
  - Astigmatism [Not Recovered/Not Resolved]
  - Cataract [Recovered/Resolved]
  - Visual impairment [Recovered/Resolved]
  - Disease recurrence [Not Recovered/Not Resolved]
